FAERS Safety Report 9575219 (Version 1)
Quarter: 2013Q4

REPORT INFORMATION
  Report Type: Spontaneous
  Country: US (occurrence: US)
  Receive Date: 20131001
  Receipt Date: 20131001
  Transmission Date: 20140711
  Serious: Yes (Other)
  Sender: FDA-Public Use
  Company Number: US-GLAXOSMITHKLINE-A1042852A

PATIENT
  Age: 66 Year
  Sex: Female

DRUGS (4)
  1. ADVAIR [Suspect]
     Indication: ASTHMA
     Dosage: 1PUFF TWICE PER DAY
     Route: 055
     Dates: start: 2008
  2. PROAIR HFA [Concomitant]
  3. SPIRIVA [Concomitant]
  4. HYZAAR [Concomitant]

REACTIONS (3)
  - Pulmonary fibrosis [Not Recovered/Not Resolved]
  - Nasopharyngitis [Unknown]
  - Prescribed underdose [Unknown]
